FAERS Safety Report 4378220-4 (Version None)
Quarter: 2004Q2

REPORT INFORMATION
  Report Type: 
  Country: None (occurrence: None)
  Receive Date: 20040601
  Receipt Date: 20040224
  Transmission Date: 20050107
  Serious: No
  Sender: FDA-Public Use
  Company Number: WAES 0402USA01790

PATIENT
  Age: 56 Year
  Sex: Male

DRUGS (13)
  1. ZETIA [Suspect]
     Indication: HYPERCHOLESTEROLAEMIA
     Dosage: 10 MG DAILY PO
     Route: 048
     Dates: end: 20040219
  2. ZETIA [Suspect]
     Indication: HYPERCHOLESTEROLAEMIA
     Dosage: 10 MG DAILY
  3. BEXTRA [Concomitant]
  4. LEVITRA [Concomitant]
  5. MAVIK [Concomitant]
  6. PERCOCET [Concomitant]
  7. PLAVIX [Concomitant]
  8. XANAX [Concomitant]
  9. ASPIRIN [Concomitant]
  10. CALCIUM [Concomitant]
  11. FOLIC ACID [Concomitant]
  12. INSULIN [Concomitant]
  13. MULTIVITAMIN [Concomitant]

REACTIONS (1)
  - BLOOD CREATINE PHOSPHOKINASE INCREASED [None]
